FAERS Safety Report 9714419 (Version 1)
Quarter: 2013Q4

REPORT INFORMATION
  Report Type: Report from Study
  Country: ES (occurrence: DE)
  Receive Date: 20131126
  Receipt Date: 20131126
  Transmission Date: 20140711
  Serious: Yes (Other)
  Sender: FDA-Public Use
  Company Number: DE-FRI-1000051749

PATIENT
  Age: 69 Year
  Sex: Female
  Weight: 67 kg

DRUGS (4)
  1. ACLIDINIUM [Suspect]
     Indication: CHRONIC OBSTRUCTIVE PULMONARY DISEASE
     Dosage: 644 MCG
     Dates: start: 20131022, end: 20131105
  2. AMLODIPIN AL [Concomitant]
     Dosage: 5 MG / 10 MG
  3. LISINOPRIL TAD [Concomitant]
     Dosage: 5 MG
  4. OMEPRAZOL AL T [Concomitant]
     Dosage: 20

REACTIONS (4)
  - Tachycardia [Recovered/Resolved]
  - Vision blurred [Recovered/Resolved]
  - Abdominal pain [Recovered/Resolved]
  - Headache [Recovered/Resolved]
